FAERS Safety Report 25876284 (Version 1)
Quarter: 2025Q4

REPORT INFORMATION
  Report Type: Spontaneous
  Country: BR (occurrence: BR)
  Receive Date: 20251003
  Receipt Date: 20251003
  Transmission Date: 20260118
  Serious: Yes (Hospitalization)
  Sender: ROCHE
  Company Number: BR-ROCHE-10000397292

PATIENT
  Age: 55 Year
  Sex: Male
  Weight: 93 kg

DRUGS (1)
  1. ALECENSA [Suspect]
     Active Substance: ALECTINIB HYDROCHLORIDE
     Indication: Lung neoplasm malignant
     Dosage: PRESENTATION: ALECENSA 150MG HARD CAPSULE CT?X 224?8 CAPSULES PER DAY
     Route: 065

REACTIONS (1)
  - Lymphadenectomy [Unknown]

NARRATIVE: CASE EVENT DATE: 20250811
